FAERS Safety Report 15037936 (Version 5)
Quarter: 2022Q4

REPORT INFORMATION
  Report Type: Spontaneous
  Country: RO (occurrence: RO)
  Receive Date: 20180620
  Receipt Date: 20221018
  Transmission Date: 20230113
  Serious: Yes (Hospitalization, Other)
  Sender: FDA-Public Use
  Company Number: RO-GLPHARMA-18.0148

PATIENT
  Age: 49 Year
  Sex: Female

DRUGS (15)
  1. ARIPIPRAZOLE [Suspect]
     Active Substance: ARIPIPRAZOLE
     Indication: Schizophrenia
     Dosage: UNK
     Route: 065
  2. TRIAMCINOLONE [Suspect]
     Active Substance: TRIAMCINOLONE
     Indication: Product used for unknown indication
     Dosage: UNK
     Route: 065
  3. PREDNISONE [Suspect]
     Active Substance: PREDNISONE
     Indication: Uveitis
     Dosage: UNK, LOW DOSE, UNK
     Route: 065
     Dates: start: 201605
  4. PREDNISONE [Suspect]
     Active Substance: PREDNISONE
     Indication: Choroiditis
     Dosage: UNK
     Route: 065
  5. DEXAMETHASONE [Suspect]
     Active Substance: DEXAMETHASONE
     Indication: Product used for unknown indication
     Dosage: UNK
     Route: 065
     Dates: start: 2015
  6. METHYLPREDNISOLONE [Suspect]
     Active Substance: METHYLPREDNISOLONE
     Indication: Visual acuity reduced
     Dosage: 1 G, QD,DIVIDED IN TWO DOSES(BID), PULSE THERAPY
     Route: 042
  7. METHYLPREDNISOLONE [Suspect]
     Active Substance: METHYLPREDNISOLONE
     Indication: Retinal white dots syndrome
  8. METHYLPREDNISOLONE [Suspect]
     Active Substance: METHYLPREDNISOLONE
     Indication: Retinal white dots syndrome
     Dosage: 32 G, QD, 32 G/DAY DECREASING GRADUALLY
     Route: 048
  9. METHYLPREDNISOLONE [Suspect]
     Active Substance: METHYLPREDNISOLONE
     Indication: Visual acuity reduced
     Dosage: UNK UNK, QD, 2 UNITS DAILY
     Route: 065
     Dates: start: 2015, end: 2016
  10. BEVACIZUMAB [Concomitant]
     Active Substance: BEVACIZUMAB
     Indication: Product used for unknown indication
     Dosage: UNK
     Route: 065
     Dates: start: 2015, end: 2016
  11. METHOTREXATE [Concomitant]
     Active Substance: METHOTREXATE
     Indication: Choroiditis
     Dosage: 12.5 MG, QW
     Route: 065
     Dates: start: 201605
  12. METHOTREXATE [Concomitant]
     Active Substance: METHOTREXATE
     Indication: Uveitis
     Dosage: UNK
     Route: 065
  13. VANCOMYCIN [Concomitant]
     Active Substance: VANCOMYCIN
     Indication: Product used for unknown indication
     Dosage: UNK
     Route: 065
  14. CALCIUM [Concomitant]
     Active Substance: CALCIUM
     Indication: Product used for unknown indication
     Dosage: UNK
     Route: 065
  15. VITAMIN D NOS [Concomitant]
     Active Substance: VITAMIN D NOS
     Indication: Product used for unknown indication
     Route: 065

REACTIONS (7)
  - Choroiditis [Not Recovered/Not Resolved]
  - Uveitis [Not Recovered/Not Resolved]
  - Chorioretinopathy [Recovering/Resolving]
  - Birdshot chorioretinopathy [Recovering/Resolving]
  - Drug ineffective [Unknown]
  - Retinal white dots syndrome [Unknown]
  - Cushing^s syndrome [Unknown]
